FAERS Safety Report 20910979 (Version 3)
Quarter: 2022Q4

REPORT INFORMATION
  Report Type: Report from Study
  Country: IE (occurrence: IE)
  Receive Date: 20220603
  Receipt Date: 20221123
  Transmission Date: 20230113
  Serious: Yes (Other)
  Sender: FDA-Public Use
  Company Number: IE-TAKEDA-2022TUS036769

PATIENT
  Age: 49 Year
  Sex: Female

DRUGS (7)
  1. VEDOLIZUMAB [Suspect]
     Active Substance: VEDOLIZUMAB
     Indication: Colitis ulcerative
     Dosage: 108 MILLIGRAM
     Route: 058
     Dates: start: 20220413
  2. VEDOLIZUMAB [Suspect]
     Active Substance: VEDOLIZUMAB
     Dosage: 108 MILLIGRAM
     Route: 058
  3. ATORVASTATIN [Concomitant]
     Active Substance: ATORVASTATIN
     Dosage: 10 MILLIGRAM, QD
  4. PENTASA [Concomitant]
     Active Substance: MESALAMINE
     Dosage: 1 MILLIGRAM, BID
  5. BISOP [Concomitant]
     Dosage: 3.75 MILLIGRAM, QD
  6. NEXIUM [Concomitant]
     Active Substance: ESOMEPRAZOLE MAGNESIUM
     Dosage: 40 MILLIGRAM
  7. OLMESARTAN MEDOXOMIL [Concomitant]
     Active Substance: OLMESARTAN MEDOXOMIL
     Dosage: 10 MILLIGRAM, QD

REACTIONS (3)
  - Rectal haemorrhage [Not Recovered/Not Resolved]
  - Flatulence [Not Recovered/Not Resolved]
  - Therapeutic reaction time decreased [Unknown]

NARRATIVE: CASE EVENT DATE: 20220523
